FAERS Safety Report 4750575-8 (Version None)
Quarter: 2005Q3

REPORT INFORMATION
  Report Type: 
  Country: None (occurrence: None)
  Receive Date: 20050823
  Receipt Date: 20050817
  Transmission Date: 20060218
  Serious: Yes (Other)
  Sender: FDA-Public Use
  Company Number: PHEH2005US09173

PATIENT
  Age: 72 Year
  Sex: Female

DRUGS (11)
  1. CLOZARIL [Suspect]
     Indication: SCHIZOPHRENIA
     Dosage: 100MG BID, 50MG QD
     Route: 048
  2. ARICEPT [Concomitant]
  3. ASPIRIN [Concomitant]
  4. LASIX [Concomitant]
  5. POTASSIUM CHLORIDE [Concomitant]
  6. LEVOTHYROXINE [Concomitant]
  7. DITROPAN [Concomitant]
  8. DOCUSATE SODIUM [Concomitant]
  9. TOPROL-XL [Concomitant]
  10. NAMENDA [Concomitant]
  11. LACTULOSE [Concomitant]

REACTIONS (4)
  - DEMENTIA ALZHEIMER'S TYPE [None]
  - LYMPHOCYTIC LEUKAEMIA [None]
  - NEUTROPENIA [None]
  - WHITE BLOOD CELL COUNT INCREASED [None]
